FAERS Safety Report 19110985 (Version 1)
Quarter: 2021Q2

REPORT INFORMATION
  Report Type: Spontaneous
  Country: CN (occurrence: CN)
  Receive Date: 20210409
  Receipt Date: 20210409
  Transmission Date: 20210717
  Serious: Yes (Other)
  Sender: FDA-Public Use
  Company Number: CN-PRA-000136

PATIENT
  Age: 63 Year
  Weight: 71 kg

DRUGS (4)
  1. ANTITHYMOCYTE IMMUNOGLOBULIN [Suspect]
     Active Substance: THYMOCYTE IMMUNE GLOBULIN NOS
     Indication: PROPHYLAXIS AGAINST TRANSPLANT REJECTION
     Route: 065
  2. METHYLPREDNISOLONE. [Suspect]
     Active Substance: METHYLPREDNISOLONE
     Indication: PROPHYLAXIS AGAINST TRANSPLANT REJECTION
     Route: 065
  3. METHYLPREDNISOLONE. [Suspect]
     Active Substance: METHYLPREDNISOLONE
     Indication: PROPHYLAXIS AGAINST TRANSPLANT REJECTION
     Dosage: (500 MG FOR THE FIRST DAY, 250 MG FOR THE SECOND DAY AND THIRD DAY)
     Route: 065
  4. IMMUNOGLOBULIN HUMAN NORMAL [Suspect]
     Active Substance: HUMAN IMMUNOGLOBULIN G
     Indication: APLASIA PURE RED CELL
     Route: 042

REACTIONS (4)
  - Product use in unapproved indication [Unknown]
  - Aplasia pure red cell [Unknown]
  - Parvovirus B19 infection [Unknown]
  - Reticulocytopenia [Unknown]
